FAERS Safety Report 15538468 (Version 2)
Quarter: 2018Q4

REPORT INFORMATION
  Report Type: Spontaneous
  Country: JP (occurrence: JP)
  Receive Date: 20181022
  Receipt Date: 20181105
  Transmission Date: 20190205
  Serious: No
  Sender: FDA-Public Use
  Company Number: JP-CELGENEUS-JPN-20181007000

PATIENT
  Age: 80 Year
  Sex: Female

DRUGS (1)
  1. OTEZLA [Suspect]
     Active Substance: APREMILAST
     Indication: PSORIASIS
     Dosage: UNKNOWN
     Route: 048

REACTIONS (1)
  - Condition aggravated [Unknown]
